FAERS Safety Report 13147350 (Version 1)
Quarter: 2017Q1

REPORT INFORMATION
  Report Type: Spontaneous
  Country: IT (occurrence: IT)
  Receive Date: 20170125
  Receipt Date: 20170125
  Transmission Date: 20170428
  Serious: Yes (Other)
  Sender: FDA-Public Use
  Company Number: IT-BAXTER-2017BAX002034

PATIENT
  Age: 37 Year
  Sex: Male

DRUGS (11)
  1. EPIRUBICIN [Suspect]
     Active Substance: EPIRUBICIN
     Indication: SYNOVIAL SARCOMA METASTATIC
     Dosage: DAY 1 AND 2
     Route: 065
  2. EPIRUBICIN [Suspect]
     Active Substance: EPIRUBICIN
     Route: 065
  3. TRABECTEDIN [Concomitant]
     Active Substance: TRABECTEDIN
     Route: 065
     Dates: start: 2011
  4. SORAFENIB [Concomitant]
     Active Substance: SORAFENIB
     Indication: SYNOVIAL SARCOMA METASTATIC
     Route: 065
  5. HOLOXAN [Suspect]
     Active Substance: IFOSFAMIDE
     Indication: SYNOVIAL SARCOMA METASTATIC
     Dosage: 3 G/M2 ON DAYS 1-3
     Route: 065
     Dates: start: 2009
  6. HOLOXAN [Suspect]
     Active Substance: IFOSFAMIDE
     Route: 065
     Dates: start: 2009
  7. TRABECTEDIN [Concomitant]
     Active Substance: TRABECTEDIN
     Indication: SYNOVIAL SARCOMA METASTATIC
     Route: 065
     Dates: start: 201104
  8. DEXAMETHASONE. [Concomitant]
     Active Substance: DEXAMETHASONE
     Indication: SYNOVIAL SARCOMA METASTATIC
     Route: 065
     Dates: start: 201104
  9. HOLOXAN [Suspect]
     Active Substance: IFOSFAMIDE
     Dosage: 1 G/M2/DAY (HIGH DOSE)
     Route: 041
  10. MESNA. [Concomitant]
     Active Substance: MESNA
     Indication: PRODUCT USED FOR UNKNOWN INDICATION
     Route: 065
  11. GRANULOCYTE COLONY STIMULATING FACTOR [Concomitant]
     Active Substance: GRANULOCYTE COLONY-STIMULATING FACTOR NOS
     Indication: PROPHYLAXIS
     Route: 065

REACTIONS (3)
  - Therapy non-responder [Unknown]
  - Nausea [Unknown]
  - Vomiting [Unknown]

NARRATIVE: CASE EVENT DATE: 2009
